FAERS Safety Report 4454028-6 (Version None)
Quarter: 2004Q3

REPORT INFORMATION
  Report Type: 
  Country: None (occurrence: None)
  Receive Date: 20040826
  Receipt Date: 20040518
  Transmission Date: 20050211
  Serious: No
  Sender: FDA-Public Use
  Company Number: WAES 0401USA01187

PATIENT
  Age: 70 Year
  Sex: Female
  Weight: 88.905 kg

DRUGS (5)
  1. ZETIA [Suspect]
     Indication: LOW DENSITY LIPOPROTEIN INCREASED
     Dosage: 10 MG, UNK, PO
     Route: 048
     Dates: start: 20040106, end: 20040107
  2. LOPRESSOR [Concomitant]
  3. PRAVACHOL [Concomitant]
  4. SYNTHROID [Concomitant]
  5. ALBUTEROL [Concomitant]

REACTIONS (6)
  - ANXIETY [None]
  - DIZZINESS [None]
  - HEADACHE [None]
  - NAUSEA [None]
  - PALPITATIONS [None]
  - TREMOR [None]
